FAERS Safety Report 6061496-5 (Version None)
Quarter: 2009Q1

REPORT INFORMATION
  Report Type: 
  Country: None (occurrence: None)
  Receive Date: 20090202
  Receipt Date: 20090122
  Transmission Date: 20090719
  Serious: Yes (Hospitalization)
  Sender: FDA-Public Use
  Company Number: PL-ROCHE-485536

PATIENT
  Sex: Male
  Weight: 69 kg

DRUGS (35)
  1. METHOXY POLYETHYLENE GLYCOL-EPOETIN BETA [Suspect]
     Dosage: DOSAGE FORM REPORTED AS VIAL.
     Route: 058
     Dates: start: 20051101
  2. METHOXY POLYETHYLENE GLYCOL-EPOETIN BETA [Suspect]
     Route: 058
  3. METHOXY POLYETHYLENE GLYCOL-EPOETIN BETA [Suspect]
     Route: 058
  4. METHOXY POLYETHYLENE GLYCOL-EPOETIN BETA [Suspect]
     Dosage: DOSAGE FORM VIAL.
     Route: 058
  5. METHOXY POLYETHYLENE GLYCOL-EPOETIN BETA [Suspect]
     Dosage: DOSAGE FORM VIAL.
     Route: 058
  6. METHOXY POLYETHYLENE GLYCOL-EPOETIN BETA [Suspect]
     Dosage: DOSAGE FORM REPORTED AS VIAL.
     Route: 058
  7. METHOXY POLYETHYLENE GLYCOL-EPOETIN BETA [Suspect]
     Route: 058
  8. NADROPARIN [Concomitant]
     Dates: start: 20050723, end: 20061204
  9. NADROPARIN [Concomitant]
     Dates: start: 20080430, end: 20080516
  10. NADROPARIN [Concomitant]
     Dosage: TOTAL DAILY DOSE/UNIT: 3800IU AXA 0.4 ML
     Dates: end: 20080807
  11. NADROPARIN [Concomitant]
     Dosage: TOTAL DAILY DOSE/UNIT: 3800IU AXA
     Dates: start: 20080904
  12. OMEPRAZOLE [Concomitant]
     Dosage: STOPPED ON 01 MARCH 2007 AND RESTARTED ON AN UNKNOWN DATE.
     Dates: start: 20050809, end: 20070930
  13. OMEPRAZOLE [Concomitant]
     Dates: start: 20071018, end: 20080807
  14. FUROSEMIDE [Concomitant]
     Dates: start: 20040430, end: 20080428
  15. FUROSEMIDE [Concomitant]
     Dates: start: 20080430, end: 20080807
  16. HUMAN INSULIN [Concomitant]
     Dates: start: 20061206
  17. HUMAN INSULIN [Concomitant]
     Dates: end: 20080428
  18. HUMAN INSULIN [Concomitant]
     Dates: start: 20080430, end: 20080512
  19. HUMAN INSULIN [Concomitant]
     Dates: start: 20080513
  20. LOPERAMIDE HCL [Concomitant]
     Dates: start: 19950101
  21. MOLSIDOMINE [Concomitant]
     Dates: start: 20040306
  22. ISOSORBIDE MONONITRATE [Concomitant]
     Dates: start: 20061218
  23. ALLOPURINOL [Concomitant]
     Dates: start: 20050708, end: 20061205
  24. BRAUNOL [Concomitant]
     Dosage: TOTAL DAILY DOSE REPORTED AS TOPICALLY.
     Route: 061
     Dates: start: 20051018
  25. TICLOPIDINE HCL [Concomitant]
     Dates: start: 20040707, end: 20061205
  26. ALUMINUM HYDROXIDE GEL [Concomitant]
     Dates: start: 20050824, end: 20061205
  27. IRON SULPHATE [Concomitant]
     Dates: start: 20031007, end: 20070402
  28. CALCIUM CARBONATE [Concomitant]
     Dates: start: 20061206, end: 20080429
  29. CALCIUM CARBONATE [Concomitant]
     Dates: start: 20080430, end: 20080512
  30. CALCIUM CARBONATE [Concomitant]
     Dates: start: 20080513, end: 20080807
  31. CALCIUM CARBONATE [Concomitant]
     Dates: start: 20080808
  32. AMLODIPINE [Concomitant]
     Dates: start: 20061214
  33. PANTOPRAZOLE [Concomitant]
     Dates: start: 20071001, end: 20071017
  34. CLEMASTIN [Concomitant]
     Dates: start: 20080828
  35. SOTALOL [Concomitant]
     Dates: start: 20080904

REACTIONS (2)
  - DIABETIC FOOT [None]
  - PERICARDITIS [None]
